FAERS Safety Report 5751639-2 (Version None)
Quarter: 2008Q2

REPORT INFORMATION
  Report Type: 
  Country: None (occurrence: None)
  Receive Date: 20080528
  Receipt Date: 20080521
  Transmission Date: 20081010
  Serious: Yes (Hospitalization)
  Sender: FDA-Public Use
  Company Number: PHHY2008JP01430

PATIENT
  Sex: Female

DRUGS (5)
  1. AREDIA [Suspect]
     Indication: METASTASES TO BONE
     Dates: start: 20020101
  2. ANASTROZOLE [Concomitant]
     Indication: METASTASES TO BONE
     Dates: start: 20020101
  3. XELODA [Concomitant]
     Indication: METASTASES TO BONE
     Dates: start: 20020101
  4. ARIMIDEX [Concomitant]
     Indication: METASTASES TO BONE
     Dosage: UNK
     Dates: start: 20020101
  5. XELODA [Concomitant]
     Dosage: UNK
     Dates: start: 20020101

REACTIONS (14)
  - BONE DISORDER [None]
  - COMPUTERISED TOMOGRAM ABNORMAL [None]
  - GINGIVAL ABSCESS [None]
  - GINGIVAL OPERATION [None]
  - GINGIVAL SWELLING [None]
  - GINGIVITIS [None]
  - GRANULOMA [None]
  - IMPAIRED HEALING [None]
  - OSTEOMYELITIS [None]
  - PAIN [None]
  - SCINTIGRAPHY [None]
  - SEQUESTRECTOMY [None]
  - TENDERNESS [None]
  - TOOTH EXTRACTION [None]
